FAERS Safety Report 8135759-3 (Version None)
Quarter: 2012Q1

REPORT INFORMATION
  Report Type: 
  Country: None (occurrence: None)
  Receive Date: 20120214
  Receipt Date: 20120202
  Transmission Date: 20120608
  Serious: Yes (Hospitalization)
  Sender: FDA-Public Use
  Company Number: PL-UCBSA-051049

PATIENT
  Age: 56 Year
  Sex: Female
  Weight: 64 kg

DRUGS (9)
  1. ACID FOLICUM [Concomitant]
     Indication: PROPHYLAXIS
     Route: 048
     Dates: start: 20020801
  2. ALFADIOL [Concomitant]
     Indication: PROPHYLAXIS
     Route: 048
     Dates: start: 20020801
  3. SIMVASTATIN [Concomitant]
     Indication: PROPHYLAXIS
     Route: 048
     Dates: start: 20060901
  4. METHYLPREDNISOLONE [Concomitant]
     Indication: RHEUMATOID ARTHRITIS
     Route: 048
     Dates: start: 20070131
  5. DEFLEGMIN [Concomitant]
     Indication: CHRONIC OBSTRUCTIVE PULMONARY DISEASE
     Route: 048
     Dates: start: 20050516
  6. ACARD [Concomitant]
     Indication: MYOCARDIAL ISCHAEMIA
     Route: 048
     Dates: start: 20031031
  7. CERTOLIZUMAB PEGOL [Suspect]
     Indication: RHEUMATOID ARTHRITIS
     Dosage: NO. OF DOSESE RECEIVED: 44
     Route: 058
     Dates: start: 20100410, end: 20111206
  8. LOKREN [Concomitant]
     Indication: MYOCARDIAL ISCHAEMIA
     Route: 048
     Dates: start: 20040118
  9. CARDILOPIN [Concomitant]
     Indication: HYPERTENSION
     Route: 048
     Dates: start: 20031031

REACTIONS (1)
  - NEPHROLITHIASIS [None]
